FAERS Safety Report 23739687 (Version 1)
Quarter: 2024Q2

REPORT INFORMATION
  Report Type: Spontaneous
  Country: ES (occurrence: ES)
  Receive Date: 20240413
  Receipt Date: 20240413
  Transmission Date: 20240716
  Serious: Yes (Life-Threatening, Hospitalization)
  Sender: FDA-Public Use
  Company Number: None

PATIENT
  Age: 75 Year
  Sex: Female
  Weight: 70 kg

DRUGS (2)
  1. DOCETAXEL [Suspect]
     Active Substance: DOCETAXEL\DOCETAXEL ANHYDROUS
     Indication: Lung adenocarcinoma
     Dosage: TIME INTERVAL: 1 TOTAL: 60MG/M2 (105MG) SINGLE DOSE??DOCETAXEL (7394A)
     Route: 042
     Dates: start: 20231122, end: 20231122
  2. GILOTRIF [Suspect]
     Active Substance: AFATINIB
     Indication: Lung adenocarcinoma
     Dosage: 1 A DAY??GIOTRIF 30 MG FILM-COATED TABLETS 28 TABLETS
     Route: 048
     Dates: start: 20231108

REACTIONS (3)
  - Escherichia sepsis [Recovered/Resolved]
  - Anaemia [Recovered/Resolved]
  - Agranulocytosis [Recovered/Resolved]

NARRATIVE: CASE EVENT DATE: 20231129
